FAERS Safety Report 7327060-2 (Version None)
Quarter: 2011Q1

REPORT INFORMATION
  Report Type: 
  Country: None (occurrence: None)
  Receive Date: 20110302
  Receipt Date: 20110203
  Transmission Date: 20110831
  Serious: No
  Sender: FDA-Public Use
  Company Number: US-B.I. PHARMACEUTICALS,INC./RIDGEFIELD-2011-BP-03408BP

PATIENT
  Sex: Female

DRUGS (2)
  1. THYROID TAB [Concomitant]
     Indication: HYPOTHYROIDISM
     Dosage: 120 MG
     Route: 048
  2. COMBIVENT [Suspect]
     Indication: BRONCHITIS
     Route: 055
     Dates: start: 20110131, end: 20110201

REACTIONS (1)
  - EPISTAXIS [None]
